FAERS Safety Report 21296115 (Version 1)
Quarter: 2022Q3

REPORT INFORMATION
  Report Type: Spontaneous
  Country: CN (occurrence: CN)
  Receive Date: 20220906
  Receipt Date: 20220906
  Transmission Date: 20221026
  Serious: Yes (Other)
  Sender: FDA-Public Use
  Company Number: CN-ORGANON-O2208CHN002349

PATIENT
  Age: 42 Year
  Sex: Female
  Weight: 57 kg

DRUGS (3)
  1. DIPROSPAN [Suspect]
     Active Substance: BETAMETHASONE DIPROPIONATE\BETAMETHASONE SODIUM PHOSPHATE
     Indication: Antiinflammatory therapy
     Dosage: 1 MILLILITER, QD
     Route: 014
     Dates: start: 20220712, end: 20220712
  2. SODIUM HYALURONATE [Concomitant]
     Active Substance: HYALURONATE SODIUM
     Indication: Rotator cuff syndrome
     Dosage: 25 MILLIGRAM, QD
     Route: 014
     Dates: start: 20220712, end: 20220712
  3. ROPIVACAINE HYDROCHLORIDE [Concomitant]
     Active Substance: ROPIVACAINE HYDROCHLORIDE
     Indication: Local anaesthesia
     Dosage: 100 MILLIGRAM, QD
     Route: 014
     Dates: start: 20220712, end: 20220712

REACTIONS (2)
  - White blood cell count increased [Recovered/Resolved]
  - Granulocyte count increased [Recovered/Resolved]

NARRATIVE: CASE EVENT DATE: 20220714
